FAERS Safety Report 7279669-2 (Version None)
Quarter: 2011Q1

REPORT INFORMATION
  Report Type: 
  Country: None (occurrence: None)
  Receive Date: 20110203
  Receipt Date: 20110203
  Transmission Date: 20110831
  Serious: Yes (Other)
  Sender: FDA-Public Use
  Company Number: None

PATIENT
  Age: 36 Year
  Sex: Female
  Weight: 85.7298 kg

DRUGS (1)
  1. NITROFURANTOIN [Suspect]
     Indication: URINARY TRACT INFECTION
     Dosage: ONE CAPSULE TWICE DAILY PO
     Route: 048
     Dates: start: 20101213, end: 20101217

REACTIONS (5)
  - DYSPNOEA [None]
  - PAIN IN EXTREMITY [None]
  - CHEST CRUSHING [None]
  - PAIN IN JAW [None]
  - PAIN [None]
